FAERS Safety Report 9373412 (Version 2)
Quarter: 2013Q3

REPORT INFORMATION
  Report Type: Spontaneous
  Country: FR (occurrence: FR)
  Receive Date: 20130627
  Receipt Date: 20130703
  Transmission Date: 20140515
  Serious: Yes (Other)
  Sender: FDA-Public Use
  Company Number: FR-PFIZER INC-2013188631

PATIENT
  Age: 81 Year
  Sex: Male

DRUGS (3)
  1. OGAST [Suspect]
     Indication: PRODUCT USED FOR UNKNOWN INDICATION
     Dosage: UNK. (1 IN 1 D)
     Route: 048
     Dates: start: 20130408, end: 20130418
  2. CORDARONE X [Suspect]
     Dosage: 200 MG, 1X/DAY
     Route: 048
     Dates: start: 20130408, end: 20130418
  3. PREVISCAN [Suspect]
     Indication: PRODUCT USED FOR UNKNOWN INDICATION
     Dosage: 20 MG, 1X/DAY
     Route: 048
     Dates: start: 20130408, end: 20130418

REACTIONS (2)
  - Rash generalised [Recovered/Resolved]
  - Hyperthermia [Recovered/Resolved]
